FAERS Safety Report 18560006 (Version 1)
Quarter: 2020Q4

REPORT INFORMATION
  Report Type: Report from Study
  Country: JP (occurrence: JP)
  Receive Date: 20201130
  Receipt Date: 20201130
  Transmission Date: 20210114
  Serious: Yes (Hospitalization)
  Sender: FDA-Public Use
  Company Number: JP-SHIRE-JP201512381

PATIENT
  Age: 10 Month
  Sex: Male

DRUGS (49)
  1. VELAGLUCERASE ALFA [Suspect]
     Active Substance: VELAGLUCERASE ALFA
     Indication: GAUCHER^S DISEASE TYPE II
     Dosage: 60 IU/KG, 1X/2WKS (IN THE FIRST TIME ONLY 1X/3WKS)
     Route: 041
     Dates: start: 20140918, end: 20150304
  2. VELAGLUCERASE ALFA [Suspect]
     Active Substance: VELAGLUCERASE ALFA
     Dosage: 800IU, 1X/2WKS
     Route: 041
     Dates: start: 20171025
  3. GABAPEN [Concomitant]
     Active Substance: GABAPENTIN
     Dosage: 250 MG, UNKNOWN
     Route: 048
     Dates: end: 20160928
  4. GABAPEN [Concomitant]
     Active Substance: GABAPENTIN
     Dosage: 1500 MG, UNKNOWN
     Route: 065
     Dates: start: 20161002, end: 20161030
  5. LANDSEN [Concomitant]
     Active Substance: CLONAZEPAM
     Dosage: 2 MG, UNKNOWN
     Route: 048
     Dates: end: 20170815
  6. LANDSEN [Concomitant]
     Active Substance: CLONAZEPAM
     Dosage: 4.8 MILLIGRAM
     Route: 048
     Dates: start: 20171005
  7. BAKTAR [Concomitant]
     Active Substance: SULFAMETHOXAZOLE\TRIMETHOPRIM
     Indication: PRODUCT USED FOR UNKNOWN INDICATION
     Dosage: 0.36 G, UNKNOWN
     Route: 048
  8. ALLOPURINOL. [Concomitant]
     Active Substance: ALLOPURINOL
     Dosage: 120 MG, UNKNOWN
     Route: 048
     Dates: start: 20180912
  9. VELAGLUCERASE ALFA [Suspect]
     Active Substance: VELAGLUCERASE ALFA
     Dosage: 80 INTERNATIONAL UNIT/KILOGRAM, 4 VILALS
     Route: 041
     Dates: start: 202006, end: 202009
  10. CERCIN [Concomitant]
     Active Substance: DIAZEPAM
     Indication: GAUCHER^S DISEASE TYPE II
     Dosage: 4.8-10 MG, UNKNOWN
     Route: 048
     Dates: end: 20180619
  11. CERCIN [Concomitant]
     Active Substance: DIAZEPAM
     Dosage: 10-15 MG, UNKNOWN
     Route: 048
     Dates: start: 20180620
  12. DEPAKENE [Concomitant]
     Active Substance: VALPROIC ACID
     Indication: GAUCHER^S DISEASE TYPE II
     Dosage: 225-750 MG, UNK
     Route: 048
  13. FAMOTIDINE. [Concomitant]
     Active Substance: FAMOTIDINE
     Indication: ADVERSE EVENT
     Dosage: 8 MG, UNKNOWN
     Route: 048
     Dates: start: 20160506, end: 20160924
  14. VELAGLUCERASE ALFA [Suspect]
     Active Substance: VELAGLUCERASE ALFA
     Dosage: 60 IU/KG, 1X/2WKS
     Route: 041
     Dates: start: 20150318
  15. VELAGLUCERASE ALFA [Suspect]
     Active Substance: VELAGLUCERASE ALFA
     Dosage: 70 INTERNATIONAL UNIT/KILOGRAM, 3 VILALS
     Route: 041
     Dates: start: 202009
  16. LIORESAL [Concomitant]
     Active Substance: BACLOFEN
     Indication: GAUCHER^S DISEASE TYPE II
     Dosage: 5-12 MG, UNKNOWN
     Route: 048
  17. RISPERDAL [Concomitant]
     Active Substance: RISPERIDONE
     Indication: GAUCHER^S DISEASE TYPE II
     Dosage: 0.6 MG, UNKNOWN
     Route: 048
     Dates: start: 20150225, end: 20150314
  18. PHENOBARBITAL. [Concomitant]
     Active Substance: PHENOBARBITAL
     Dosage: 30-100MG/DAY, UNKNOWN
     Route: 048
     Dates: start: 20150307
  19. PHENOBARBITAL. [Concomitant]
     Active Substance: PHENOBARBITAL
     Dosage: 230 MG, UNKNOWN
     Route: 048
     Dates: start: 20170301, end: 20180817
  20. PHENOBARBITAL. [Concomitant]
     Active Substance: PHENOBARBITAL
     Dosage: 375 MG, UNKNOWN
     Route: 048
     Dates: start: 20180818
  21. DEPAKENE [Concomitant]
     Active Substance: VALPROIC ACID
     Dosage: 600 MILLIGRAM, UNKNOWN
     Route: 048
     Dates: start: 20170331, end: 20171208
  22. GABAPEN [Concomitant]
     Active Substance: GABAPENTIN
     Dosage: 300 MG, UNKNOWN
     Route: 065
     Dates: start: 20180820
  23. FAMOTIDINE. [Concomitant]
     Active Substance: FAMOTIDINE
     Dosage: 12 MILLIGRAM
     Route: 048
     Dates: start: 20180727
  24. ALLOPURINOL. [Concomitant]
     Active Substance: ALLOPURINOL
     Indication: BLOOD URIC ACID INCREASED
     Dosage: 100 MG, UNKNOWN
     Route: 048
     Dates: start: 20170425, end: 20180911
  25. RISPERDAL [Concomitant]
     Active Substance: RISPERIDONE
     Dosage: 0.5MG, UNKNOWN
     Route: 048
     Dates: start: 20150316
  26. DEPAKENE [Concomitant]
     Active Substance: VALPROIC ACID
     Dosage: UNK
  27. TERNELIN [Concomitant]
     Active Substance: TIZANIDINE
     Indication: GAUCHER^S DISEASE TYPE II
     Dosage: 0.4 -5.0 MG, UNKNOWN
     Route: 048
     Dates: start: 20150324
  28. DEPAKENE [Concomitant]
     Active Substance: VALPROIC ACID
     Dosage: 300 MG, UNKNOWN
     Route: 048
     Dates: end: 20170228
  29. LANDSEN [Concomitant]
     Active Substance: CLONAZEPAM
     Dosage: 2.4 MG, UNKNOWN
     Route: 048
     Dates: start: 20170816, end: 20171004
  30. NOBELBAR [Concomitant]
     Active Substance: PHENOBARBITAL SODIUM
     Indication: GAUCHER^S DISEASE TYPE II
     Dosage: 200 MG, UNK
     Route: 042
     Dates: start: 20161026, end: 20161029
  31. FYCOMPA [Concomitant]
     Active Substance: PERAMPANEL
     Indication: GAUCHER^S DISEASE TYPE II
     Dosage: 0.5-1.5MG
     Route: 048
     Dates: start: 20171114
  32. VELAGLUCERASE ALFA [Suspect]
     Active Substance: VELAGLUCERASE ALFA
     Dosage: 800IU, 1X/2WKS
     Route: 041
     Dates: start: 20160928
  33. VELAGLUCERASE ALFA [Suspect]
     Active Substance: VELAGLUCERASE ALFA
     Dosage: 1200IU, 1X/2WKS
     Route: 041
     Dates: start: 20180411
  34. LIORESAL [Concomitant]
     Active Substance: BACLOFEN
     Dosage: 12 MG, UNKNOWN
     Route: 048
  35. RISPERDAL [Concomitant]
     Active Substance: RISPERIDONE
     Dosage: 1 MG, UNKNOWN
     Route: 048
  36. PHENOBARBITAL. [Concomitant]
     Active Substance: PHENOBARBITAL
     Indication: GAUCHER^S DISEASE TYPE II
     Dosage: 70-100 MG, UNKNOWN
     Route: 048
     Dates: start: 20150307
  37. GABAPEN [Concomitant]
     Active Substance: GABAPENTIN
     Indication: GAUCHER^S DISEASE TYPE II
     Dosage: 200-700 MG, UNKNOWN
     Route: 065
     Dates: start: 20160529
  38. LANDSEN [Concomitant]
     Active Substance: CLONAZEPAM
     Indication: GAUCHER^S DISEASE TYPE II
     Dosage: 1-2 MG, UNKNOWN
     Route: 048
     Dates: start: 20160730
  39. LANDSEN [Concomitant]
     Active Substance: CLONAZEPAM
     Dosage: 2.4 MG, UNKNOWN
     Route: 048
     Dates: start: 20170816, end: 20171004
  40. UNASYN S [Concomitant]
     Active Substance: AMPICILLIN SODIUM\SULBACTAM SODIUM
     Indication: PRODUCT USED FOR UNKNOWN INDICATION
     Dosage: 1.35 G, UNKNOWN
     Route: 042
     Dates: start: 20160920, end: 20160926
  41. VELAGLUCERASE ALFA [Suspect]
     Active Substance: VELAGLUCERASE ALFA
     Dosage: 1200IU, 1X/2WKS
     Route: 041
     Dates: start: 20180117
  42. PHENOBARBITAL. [Concomitant]
     Active Substance: PHENOBARBITAL
     Dosage: 100 MG, UNKNOWN
     Route: 048
     Dates: end: 20170228
  43. NOBELBAR [Concomitant]
     Active Substance: PHENOBARBITAL SODIUM
     Dosage: 200 MG, UNK
     Route: 042
     Dates: end: 20180817
  44. DOPASTON [Concomitant]
     Active Substance: LEVODOPA
     Indication: PRODUCT USED FOR UNKNOWN INDICATION
     Dosage: 80 MG, UNKNOWN
     Route: 048
     Dates: start: 20160920, end: 20161011
  45. VELAGLUCERASE ALFA [Suspect]
     Active Substance: VELAGLUCERASE ALFA
     Dosage: 3 DOSAGE FORM
     Route: 041
     Dates: end: 202006
  46. CARBOCISTEINE [Concomitant]
     Active Substance: CARBOCYSTEINE
     Indication: PRODUCT USED FOR UNKNOWN INDICATION
     Dosage: 240 MG, UNKNOWN
     Route: 048
     Dates: end: 20160715
  47. CARBOCISTEINE [Concomitant]
     Active Substance: CARBOCYSTEINE
     Indication: PRODUCT USED FOR UNKNOWN INDICATION
  48. DEPAKENE [Concomitant]
     Active Substance: VALPROIC ACID
     Dosage: 400 MILLIGRAM, UNKNOWN
     Route: 048
     Dates: start: 20171209
  49. GABAPEN [Concomitant]
     Active Substance: GABAPENTIN
     Dosage: 700 MG, UNKNOWN
     Route: 065
     Dates: start: 20160929, end: 20161001

REACTIONS (6)
  - Hyperchlorhydria [Not Recovered/Not Resolved]
  - Constipation [Recovered/Resolved]
  - Gastric hypomotility [Not Recovered/Not Resolved]
  - Vesicoureteric reflux [Recovered/Resolved]
  - Gastrooesophageal reflux disease [Recovered/Resolved]
  - Urinary tract infection [Recovered/Resolved]

NARRATIVE: CASE EVENT DATE: 20141019
